FAERS Safety Report 8578779 (Version 2)
Quarter: 2012Q4

REPORT INFORMATION
  Report Type: 
  Country: JP (occurrence: JP)
  Receive Date: 20120524
  Receipt Date: 20121004
  Transmission Date: 20130627
  Serious: No
  Sender: FDA-Public Use
  Company Number: JP-JNJFOC-20120517162

PATIENT
  Age: 7 None
  Sex: Male

DRUGS (2)
  1. TRAMCET [Suspect]
     Indication: PAIN
     Dosage: 4 DF, once per day
     Route: 048
  2. TRAMCET [Suspect]
     Indication: PAIN
     Dosage: 2 DF, once per day
     Route: 048

REACTIONS (1)
  - Somnolence [Recovered/Resolved]
